FAERS Safety Report 11261679 (Version 1)
Quarter: 2015Q3

REPORT INFORMATION
  Report Type: Spontaneous
  Country: US (occurrence: US)
  Receive Date: 20150710
  Receipt Date: 20150710
  Transmission Date: 20151125
  Serious: No
  Sender: FDA-Public Use
  Company Number: US-PFIZER INC-2015227976

PATIENT
  Sex: Male

DRUGS (1)
  1. DILANTIN [Suspect]
     Active Substance: PHENYTOIN
     Dosage: 400 MG, 1X/DAY

REACTIONS (6)
  - Amnesia [Unknown]
  - Eating disorder [Unknown]
  - Tinnitus [Unknown]
  - Nausea [Unknown]
  - Gait disturbance [Unknown]
  - Abdominal discomfort [Unknown]
